FAERS Safety Report 10637981 (Version 30)
Quarter: 2018Q4

REPORT INFORMATION
  Report Type: Spontaneous
  Country: US (occurrence: US)
  Receive Date: 20141208
  Receipt Date: 20181126
  Transmission Date: 20190204
  Serious: Yes (Hospitalization, Other)
  Sender: FDA-Public Use
  Company Number: US-ACTELION-A-US2014-108898

PATIENT
  Age: 50 Year
  Sex: Female
  Weight: 60.77 kg

DRUGS (39)
  1. VELETRI [Suspect]
     Active Substance: EPOPROSTENOL
     Dosage: 30 NG/KG, PER MIN
     Route: 042
  2. NEURONTIN [Concomitant]
     Active Substance: GABAPENTIN
     Dosage: 900 MG, TID
  3. TRAMADOL. [Concomitant]
     Active Substance: TRAMADOL
     Dosage: 50 MG, PRN Q6H
  4. CLARITIN [Concomitant]
     Active Substance: LORATADINE
  5. VITAMIN D2 [Concomitant]
     Active Substance: ERGOCALCIFEROL
  6. VENTOLIN HFA [Concomitant]
     Active Substance: ALBUTEROL SULFATE
  7. KEFLEX [Concomitant]
     Active Substance: CEPHALEXIN
     Dosage: UNK
     Dates: start: 20180802
  8. OXYGEN. [Concomitant]
     Active Substance: OXYGEN
  9. AMBIEN [Concomitant]
     Active Substance: ZOLPIDEM TARTRATE
     Dosage: 5 MG,  QHS, PRN
  10. ZOFRAN [Concomitant]
     Active Substance: ONDANSETRON HYDROCHLORIDE
     Dosage: 4-8 MG Q4-6H PRN
  11. CEFTIN [Concomitant]
     Active Substance: CEFUROXIME AXETIL
  12. NEURONTIN [Concomitant]
     Active Substance: GABAPENTIN
     Dosage: 300 MG, TID
  13. MORPHINE [Concomitant]
     Active Substance: MORPHINE
     Dosage: 30 MG, BID
  14. ACLOVATE [Concomitant]
     Active Substance: ALCLOMETASONE DIPROPIONATE
  15. VELETRI [Suspect]
     Active Substance: EPOPROSTENOL
     Indication: PULMONARY ARTERIAL HYPERTENSION
     Dosage: 30 NG/KG, PER MIN
     Route: 042
     Dates: start: 20130130
  16. VELETRI [Suspect]
     Active Substance: EPOPROSTENOL
     Dosage: 30 NG/KG, PER MIN
     Route: 042
  17. PERCOCET [Concomitant]
     Active Substance: ACETAMINOPHEN\OXYCODONE HYDROCHLORIDE
     Dosage: 10-325
  18. TIZANIDINE. [Concomitant]
     Active Substance: TIZANIDINE
     Dosage: 4 MG, PRN
  19. PROAIR HFA [Concomitant]
     Active Substance: ALBUTEROL SULFATE
     Dosage: 2 PUFFS, Q4, PRN
  20. MULTIVITAMIN [Concomitant]
     Active Substance: VITAMINS
     Dosage: UNK, QD
  21. ALBUTEROL. [Concomitant]
     Active Substance: ALBUTEROL
     Dosage: 2 PUFF, Q4HR, PRN
  22. TRACLEER [Suspect]
     Active Substance: BOSENTAN
     Indication: PULMONARY ARTERIAL HYPERTENSION
     Dosage: 125 MG, BID
     Route: 048
     Dates: start: 20141209
  23. ATIVAN [Concomitant]
     Active Substance: LORAZEPAM
     Dosage: 1 MG, TID, PRN
  24. NEURONTIN [Concomitant]
     Active Substance: GABAPENTIN
     Dosage: 600 MG, TID
  25. PROTONIX [Concomitant]
     Active Substance: PANTOPRAZOLE SODIUM
     Dosage: 40 MG, BID
  26. MARIJUANA [Concomitant]
     Active Substance: CANNABIS SATIVA SUBSP. INDICA TOP
  27. LACTULOSE. [Concomitant]
     Active Substance: LACTULOSE
     Dosage: 10-20 TID PRN
  28. REVATIO [Concomitant]
     Active Substance: SILDENAFIL CITRATE
     Dosage: 60 MG, TID
  29. PROZAC [Concomitant]
     Active Substance: FLUOXETINE HYDROCHLORIDE
     Dosage: 10 MG, QD
  30. BENADRYL [Concomitant]
     Active Substance: DIPHENHYDRAMINE HYDROCHLORIDE
     Dosage: 25 MG, 1 - 2 CAPS
  31. POTASSIUM CHLORIDE. [Concomitant]
     Active Substance: POTASSIUM CHLORIDE
     Dosage: 10 MEQ, QD
  32. FUROSEMIDE. [Concomitant]
     Active Substance: FUROSEMIDE
     Dosage: 10 MG, QD
  33. FLUTICASONE. [Concomitant]
     Active Substance: FLUTICASONE
     Dosage: 2 SPRAY, QD
  34. GABAPENTIN. [Concomitant]
     Active Substance: GABAPENTIN
  35. FLONASE [Concomitant]
     Active Substance: FLUTICASONE PROPIONATE
  36. REVATIO [Concomitant]
     Active Substance: SILDENAFIL CITRATE
     Dosage: 20 MG, TID
  37. PROZAC [Concomitant]
     Active Substance: FLUOXETINE HYDROCHLORIDE
     Dosage: 20 UNK, UNK
  38. TIZANIDINE. [Concomitant]
     Active Substance: TIZANIDINE
     Dosage: 2 MG, PRN
  39. FLOLAN [Concomitant]
     Active Substance: EPOPROSTENOL SODIUM
     Dosage: 1.5 MG, UNK
     Route: 042

REACTIONS (46)
  - Gastroenteritis [Unknown]
  - Clostridium test positive [Recovering/Resolving]
  - Back pain [Not Recovered/Not Resolved]
  - Clostridium difficile infection [Unknown]
  - Rash [Not Recovered/Not Resolved]
  - Swelling [Unknown]
  - Complication associated with device [Unknown]
  - Gastroenteritis viral [Unknown]
  - Cyclic vomiting syndrome [Recovering/Resolving]
  - Vomiting [Recovering/Resolving]
  - Blood potassium decreased [Unknown]
  - Generalised erythema [Unknown]
  - Syncope [Unknown]
  - Hot flush [Unknown]
  - Urinary tract infection [Recovering/Resolving]
  - Palpitations [Unknown]
  - Abnormal loss of weight [Unknown]
  - Gastrointestinal disorder [Unknown]
  - Drug withdrawal syndrome [Unknown]
  - Cellulitis [Unknown]
  - Product dose omission [Unknown]
  - Urticaria [Not Recovered/Not Resolved]
  - Chest pain [Not Recovered/Not Resolved]
  - Pain [Unknown]
  - Diarrhoea [Recovering/Resolving]
  - Malaise [Recovering/Resolving]
  - Device leakage [Unknown]
  - Pancreatitis [Unknown]
  - Pain in jaw [Unknown]
  - Migraine [Recovered/Resolved]
  - Pneumonia [Unknown]
  - Gallbladder disorder [Unknown]
  - Dehydration [Recovering/Resolving]
  - Pleural effusion [Unknown]
  - Dyspnoea exertional [Not Recovered/Not Resolved]
  - Cough [Unknown]
  - Decreased appetite [Unknown]
  - Flushing [Unknown]
  - Muscle spasms [Unknown]
  - Nausea [Recovering/Resolving]
  - Abdominal pain lower [Recovering/Resolving]
  - Abdominal pain [Unknown]
  - Drug hypersensitivity [Unknown]
  - Fall [Unknown]
  - Nephrolithiasis [Unknown]
  - Anxiety [Unknown]

NARRATIVE: CASE EVENT DATE: 20141221
